FAERS Safety Report 6606463-5 (Version None)
Quarter: 2010Q1

REPORT INFORMATION
  Report Type: 
  Country: None (occurrence: None)
  Receive Date: 20100226
  Receipt Date: 20100215
  Transmission Date: 20100710
  Serious: Yes (Hospitalization, Other)
  Sender: FDA-Public Use
  Company Number: PHEH2008US10696

PATIENT
  Sex: Male
  Weight: 77.098 kg

DRUGS (39)
  1. ZELNORM [Suspect]
     Indication: CONSTIPATION
     Dosage: 6 MG, BID
     Route: 048
     Dates: start: 20050512, end: 20070511
  2. ZELNORM [Suspect]
     Indication: ABDOMINAL PAIN
  3. LEVOXYL [Concomitant]
     Dosage: 200 MCG QD
     Route: 048
  4. LORCET-HD [Concomitant]
     Dosage: 1 TAB, QD
     Route: 048
  5. REGLAN [Concomitant]
     Dosage: 10 MG, QD
     Route: 048
  6. MIRALAX [Concomitant]
     Dosage: UNK
     Route: 048
  7. NITROGLYCERIN [Concomitant]
     Dosage: 0.4 MG, PRN
     Route: 048
  8. PLAVIX [Concomitant]
     Dosage: 75 MG, QD
     Route: 048
  9. PREDNISONE [Concomitant]
     Dosage: 20 MG, QD
     Route: 048
  10. PREVACID [Concomitant]
     Dosage: 30 MG, QD
     Route: 048
  11. SALSALATE [Concomitant]
     Dosage: 750 MG, QD
     Route: 048
  12. SPIRONOLACTONE W/ HYDROCHLOROTHIAZIDE [Concomitant]
     Dosage: 25/25 MG, QD
     Route: 048
  13. TOPROL-XL [Concomitant]
     Dosage: 25 MG, QD
     Route: 048
  14. ASPIRIN [Concomitant]
     Dosage: 325 MG, QD
     Route: 048
  15. CRESTOR [Concomitant]
     Dosage: 5 MG, QD
     Route: 048
  16. DARVOCET-N 100 [Concomitant]
     Dosage: 100 MG, PRN Q 6 HRS
     Route: 048
  17. DULCOLAX [Concomitant]
     Dosage: 1 UNK, UNK
     Route: 048
  18. FOLIC ACID [Concomitant]
     Dosage: 1 MG, QD
     Route: 048
  19. LASIX [Concomitant]
     Dosage: 20 MG, QD
     Route: 048
  20. GABAPENTIN [Concomitant]
     Dosage: 300 MG, TID
     Route: 048
  21. OMNICEF [Concomitant]
     Dosage: 300 MG, QD
     Route: 048
  22. ENALAPRIL MALEATE [Concomitant]
     Dosage: 2.5 MG, QD
     Route: 048
  23. NEXIUM [Concomitant]
     Dosage: 40 MG, QD
     Route: 048
  24. PHENERGAN HCL [Concomitant]
     Dosage: 25 MG, QD
     Route: 048
  25. XANAX [Concomitant]
     Dosage: 0.5 MG, QD
     Route: 048
  26. SYNTHROID [Concomitant]
     Dosage: 200MCG QD
     Route: 048
  27. CEFTRIAXONE [Concomitant]
     Dosage: 1000 MG, QD
  28. CHLORDIAZEPOXIDE [Concomitant]
     Dosage: 1 CAP, BID
     Route: 048
  29. METOPROLOL TARTRATE [Concomitant]
     Dosage: 25 MG, TID
     Route: 048
  30. LOVENOX [Concomitant]
     Dosage: 80 MG, BID
     Route: 058
  31. FLOMAX [Concomitant]
     Dosage: 0.4 MG, QD
     Route: 048
  32. LISINOPRIL [Concomitant]
     Dosage: 2.5 MG, QD
     Route: 048
  33. ALDACTONE [Concomitant]
     Dosage: 25 MG, MON/WED/ FRI
     Route: 048
  34. HEMATINIC [Concomitant]
     Dosage: 1 CAP, QD
     Route: 048
  35. INTRINSIC FACTOR [Concomitant]
     Dosage: 1 TAB, QD
     Route: 048
  36. SIMVASTATIN [Concomitant]
     Dosage: 40 MG, QHS
     Route: 048
  37. NEURONTIN [Concomitant]
     Dosage: 300 MG, TID
     Route: 048
  38. LIBRAX [Concomitant]
     Dosage: 5 MG, BID
     Route: 048
  39. PROTONIX [Concomitant]
     Dosage: 40 MG, QD

REACTIONS (29)
  - ABDOMINAL PAIN [None]
  - ANAEMIA [None]
  - ANAEMIA HAEMOLYTIC AUTOIMMUNE [None]
  - ANGINA UNSTABLE [None]
  - ANXIETY [None]
  - CARDIAC FAILURE CONGESTIVE [None]
  - CAROTID ARTERY STENOSIS [None]
  - CHEST PAIN [None]
  - CHRONIC OBSTRUCTIVE PULMONARY DISEASE [None]
  - DIARRHOEA [None]
  - DIZZINESS [None]
  - DYSPNOEA [None]
  - EMOTIONAL DISTRESS [None]
  - FATIGUE [None]
  - GASTROENTERITIS [None]
  - HEADACHE [None]
  - HIP FRACTURE [None]
  - HYPERHIDROSIS [None]
  - HYPOTHYROIDISM [None]
  - HYPOXIA [None]
  - IMPAIRED HEALING [None]
  - INJURY [None]
  - LEFT VENTRICULAR DYSFUNCTION [None]
  - MALAISE [None]
  - MUSCULAR WEAKNESS [None]
  - MYOCARDIAL ISCHAEMIA [None]
  - OESOPHAGITIS [None]
  - SKIN ULCER [None]
  - URINARY TRACT INFECTION [None]
